FAERS Safety Report 4714446-5 (Version None)
Quarter: 2005Q3

REPORT INFORMATION
  Report Type: 
  Country: None (occurrence: None)
  Receive Date: 20050714
  Receipt Date: 20050704
  Transmission Date: 20060218
  Serious: Yes (Other)
  Sender: FDA-Public Use
  Company Number: PHBS2005IN09628

PATIENT
  Age: 28 Year
  Sex: Male

DRUGS (3)
  1. VOVERAN OPHTHALMIC (NVO) [Suspect]
     Dosage: UNK, QID
  2. PREDNISOLONE ACETATE [Suspect]
  3. TIMOLET P [Concomitant]

REACTIONS (1)
  - CORNEAL EPITHELIUM DEFECT [None]
